FAERS Safety Report 16485732 (Version 6)
Quarter: 2020Q3

REPORT INFORMATION
  Report Type: Spontaneous
  Country: US (occurrence: US)
  Receive Date: 20190627
  Receipt Date: 20200907
  Transmission Date: 20201102
  Serious: Yes (Other)
  Sender: FDA-Public Use
  Company Number: US-SA-2019SA167919

PATIENT

DRUGS (5)
  1. HUMALOG [Concomitant]
     Active Substance: INSULIN LISPRO
     Dosage: 50 IU, QD
  2. VICTOZA [Concomitant]
     Active Substance: LIRAGLUTIDE
     Dosage: UNKNOWN
     Route: 065
  3. TRULICITY [Concomitant]
     Active Substance: DULAGLUTIDE
     Dosage: UNKNOWN
     Route: 065
  4. TOUJEO [Suspect]
     Active Substance: INSULIN GLARGINE
     Dosage: 80 IU, QD (ONCE AT NIGHT)
     Route: 065
  5. TOUJEO [Suspect]
     Active Substance: INSULIN GLARGINE
     Indication: TYPE 2 DIABETES MELLITUS
     Dosage: 50 IU, QD
     Route: 065
     Dates: start: 20190528

REACTIONS (13)
  - Pain in extremity [Unknown]
  - Weight increased [Unknown]
  - Sciatica [Unknown]
  - Product quality issue [Unknown]
  - Blood glucose fluctuation [Unknown]
  - Product storage error [Unknown]
  - Dyspnoea [Unknown]
  - Malaise [Unknown]
  - Peripheral swelling [Unknown]
  - Burning sensation [Unknown]
  - Chronic pigmented purpura [Unknown]
  - Rash macular [Unknown]
  - Cardiac failure congestive [Unknown]
